FAERS Safety Report 6810280-0 (Version None)
Quarter: 2010Q2

REPORT INFORMATION
  Report Type: 
  Country: None (occurrence: None)
  Receive Date: 20100630
  Receipt Date: 20100621
  Transmission Date: 20101027
  Serious: Yes (Hospitalization)
  Sender: FDA-Public Use
  Company Number: GXKR2010US06914

PATIENT
  Age: 59 Year
  Sex: Female
  Weight: 73 kg

DRUGS (5)
  1. LOSARTAN POTASSIUM+HYDROCHLOROTHIAZIDE (NGX) [Suspect]
     Dosage: 1 DF/DAY
     Route: 065
  2. NAPROXEN (NGX) [Suspect]
     Indication: ARTHRALGIA
     Dosage: 220 MG, BID
     Route: 065
  3. SIMVASTATIN [Concomitant]
     Dosage: 5 MG/DAY
     Route: 065
  4. DESLORATADINE [Concomitant]
  5. AMOXICILLIN AND CLAVULANATE POTASSIUM [Concomitant]
     Dosage: 1 DF, BID

REACTIONS (18)
  - ASTHENIA [None]
  - CEREBELLAR SYNDROME [None]
  - COUGH [None]
  - DECREASED APPETITE [None]
  - DYSARTHRIA [None]
  - FATIGUE [None]
  - GAIT DISTURBANCE [None]
  - HYPOKALAEMIA [None]
  - HYPONATRAEMIA [None]
  - INCONTINENCE [None]
  - LOCKED-IN SYNDROME [None]
  - MUCOSAL DRYNESS [None]
  - MUSCLE SPASTICITY [None]
  - OSMOTIC DEMYELINATION SYNDROME [None]
  - PARALYSIS [None]
  - SINUS CONGESTION [None]
  - TREMOR [None]
  - UNRESPONSIVE TO STIMULI [None]
